FAERS Safety Report 23164789 (Version 1)
Quarter: 2023Q4

REPORT INFORMATION
  Report Type: Spontaneous
  Country: US (occurrence: None)
  Receive Date: 20231108
  Receipt Date: 20231108
  Transmission Date: 20240109
  Serious: Yes (Other)
  Sender: FDA-Public Use
  Company Number: None

PATIENT
  Sex: Male

DRUGS (2)
  1. RESTASIS [Suspect]
     Active Substance: CYCLOSPORINE
     Dates: start: 20230901, end: 20231005
  2. METHOTREXATE [Suspect]
     Active Substance: METHOTREXATE

REACTIONS (9)
  - Pseudomonas infection [None]
  - Instillation site infection [None]
  - Contraindicated product prescribed [None]
  - Contraindicated product administered [None]
  - Headache [None]
  - Eye abrasion [None]
  - Swelling of eyelid [None]
  - Periorbital swelling [None]
  - Eye excision [None]

NARRATIVE: CASE EVENT DATE: 20230926
